FAERS Safety Report 8762739 (Version 1)
Quarter: 2012Q4

REPORT INFORMATION
  Report Type: 
  Country: US (occurrence: US)
  Receive Date: 20120830
  Receipt Date: 20120830
  Transmission Date: 20130627
  Serious: No
  Sender: FDA-Public Use
  Company Number: US-009507513-1208USA011185

PATIENT

DRUGS (5)
  1. NASONEX [Suspect]
     Indication: SINUSITIS
     Dosage: UNK
     Route: 045
     Dates: start: 20120820
  2. LEXAPRO [Concomitant]
  3. KLONOPIN [Concomitant]
  4. SEROQUEL [Concomitant]
  5. AZITHROMYCIN [Concomitant]

REACTIONS (2)
  - Pharyngeal erythema [Not Recovered/Not Resolved]
  - Dysphagia [Not Recovered/Not Resolved]
